FAERS Safety Report 13660894 (Version 1)
Quarter: 2017Q2

REPORT INFORMATION
  Report Type: Spontaneous
  Country: FR (occurrence: FR)
  Receive Date: 20170616
  Receipt Date: 20170616
  Transmission Date: 20170830
  Serious: Yes (Other)
  Sender: FDA-Public Use
  Company Number: FR-BAYER-2017-111194

PATIENT
  Age: 34 Year
  Sex: Female

DRUGS (4)
  1. MIRENA [Suspect]
     Active Substance: LEVONORGESTREL
     Indication: CHEMICAL CONTRACEPTION
     Dosage: 20 MCG/24HR, CONT
     Route: 015
     Dates: start: 20050505, end: 20100503
  2. MIRENA [Suspect]
     Active Substance: LEVONORGESTREL
     Indication: CHEMICAL CONTRACEPTION
     Dosage: 20 MCG/24HR, CONT
     Route: 015
     Dates: start: 20100503, end: 20150507
  3. MIRENA [Suspect]
     Active Substance: LEVONORGESTREL
     Indication: CHEMICAL CONTRACEPTION
     Dosage: 20 MCG/24HR, CONT
     Route: 015
     Dates: start: 2001
  4. MIRENA [Suspect]
     Active Substance: LEVONORGESTREL
     Indication: CHEMICAL CONTRACEPTION
     Dosage: 20 MCG/24HR, CONT
     Route: 015
     Dates: start: 20150507, end: 20170518

REACTIONS (15)
  - Breast cyst [Not Recovered/Not Resolved]
  - Asthenia [Unknown]
  - Visual impairment [Unknown]
  - Abdominal pain [Recovering/Resolving]
  - Back pain [Recovering/Resolving]
  - Weight increased [Not Recovered/Not Resolved]
  - Hypertrichosis [Unknown]
  - Vertigo [Unknown]
  - Tinnitus [Unknown]
  - Depression [Unknown]
  - Headache [Unknown]
  - Libido disorder [Not Recovered/Not Resolved]
  - Breast pain [Unknown]
  - Hypertension [Unknown]
  - Oedema peripheral [Recovering/Resolving]

NARRATIVE: CASE EVENT DATE: 200101
